FAERS Safety Report 4333286-2 (Version None)
Quarter: 2004Q2

REPORT INFORMATION
  Report Type: 
  Country: None (occurrence: None)
  Receive Date: 20040405
  Receipt Date: 20040324
  Transmission Date: 20050107
  Serious: Yes (Other)
  Sender: FDA-Public Use
  Company Number: 04-03-0441

PATIENT
  Age: 46 Year
  Sex: Male

DRUGS (3)
  1. CLOZAPINE [Suspect]
     Indication: SCHIZOPHRENIA
     Dosage: 200-500MG QD ORAL
     Route: 048
     Dates: start: 19991101, end: 20040301
  2. CHEMOTHERAPY [Suspect]
     Indication: HODGKIN'S DISEASE
  3. CHEMOTHERAPY [Suspect]

REACTIONS (2)
  - AGRANULOCYTOSIS [None]
  - NON-HODGKIN'S LYMPHOMA [None]
